FAERS Safety Report 21289667 (Version 1)
Quarter: 2022Q3

REPORT INFORMATION
  Report Type: Spontaneous
  Country: US (occurrence: None)
  Receive Date: 20220902
  Receipt Date: 20220902
  Transmission Date: 20221027
  Serious: No
  Sender: FDA-Public Use
  Company Number: US-ALM-HQ-US-2022-1744

PATIENT
  Sex: Female

DRUGS (1)
  1. KLISYRI [Suspect]
     Active Substance: TIRBANIBULIN
     Dates: start: 20220809, end: 20220813

REACTIONS (2)
  - Application site exfoliation [Unknown]
  - Application site pruritus [Unknown]
